FAERS Safety Report 10334755 (Version 1)
Quarter: 2014Q3

REPORT INFORMATION
  Report Type: Spontaneous
  Country: US (occurrence: None)
  Receive Date: 20140721
  Receipt Date: 20140721
  Transmission Date: 20150326
  Serious: Yes (Other)
  Sender: FDA-Public Use
  Company Number: US-ZYDUS-004129

PATIENT
  Age: 69 Year
  Sex: Male

DRUGS (1)
  1. BICALUTAMIDE. [Suspect]
     Active Substance: BICALUTAMIDE
     Indication: PRIAPISM
     Route: 048

REACTIONS (5)
  - Libido decreased [None]
  - Gynaecomastia [None]
  - Testicular atrophy [None]
  - Erectile dysfunction [None]
  - Prostate cancer [None]
